FAERS Safety Report 16476363 (Version 1)
Quarter: 2019Q2

REPORT INFORMATION
  Report Type: Spontaneous
  Country: RU (occurrence: RU)
  Receive Date: 20190626
  Receipt Date: 20190626
  Transmission Date: 20190711
  Serious: Yes (Death, Other)
  Sender: FDA-Public Use
  Company Number: PHHY2019RU145107

PATIENT
  Age: 53 Year
  Sex: Female

DRUGS (2)
  1. CYCLOPHOSPHAMIDE. [Suspect]
     Active Substance: CYCLOPHOSPHAMIDE
     Indication: IMMUNOSUPPRESSANT DRUG THERAPY
     Dosage: 1000 MG, Q4W
     Route: 042
  2. PREDNISONE. [Suspect]
     Active Substance: PREDNISONE
     Indication: IMMUNOSUPPRESSANT DRUG THERAPY
     Dosage: 60 MG, QD
     Route: 065

REACTIONS (10)
  - Peripheral swelling [Unknown]
  - Skull fracture [Unknown]
  - Tachycardia [Unknown]
  - Dyspnoea [Unknown]
  - Cerebral infarction [Fatal]
  - Cerebral infarction [Unknown]
  - Nephrotic syndrome [Unknown]
  - Infection [Unknown]
  - Purpura [Unknown]
  - Pneumothorax [Unknown]
